FAERS Safety Report 6177185-2 (Version None)
Quarter: 2009Q2

REPORT INFORMATION
  Report Type: 
  Country: None (occurrence: None)
  Receive Date: 20090504
  Receipt Date: 20090423
  Transmission Date: 20091009
  Serious: Yes (Other)
  Sender: FDA-Public Use
  Company Number: MX-PFIZER INC-2009203530

PATIENT

DRUGS (8)
  1. MARAVIROC [Suspect]
     Indication: HIV INFECTION
     Dosage: 150 MG, 2X/DAY
     Route: 048
     Dates: start: 20090826
  2. ETRAVIRINE [Concomitant]
     Dosage: 200 MG, 2X/DAY
     Route: 048
     Dates: start: 20090826
  3. DARUNAVIR [Concomitant]
     Dosage: 600 MG, 2X/DAY
     Route: 048
     Dates: start: 20090826
  4. RITONAVIR [Concomitant]
     Dosage: 100 MG, 2X/DAY
     Route: 048
     Dates: start: 20090826
  5. SULFAMETHOXAZOLE AND TRIMETHOPRIM [Concomitant]
     Dosage: 800/160 MG EOD
     Route: 048
     Dates: start: 20081027, end: 20081118
  6. ACETAMINOPHEN [Concomitant]
     Dosage: 500 MG, 2X/DAY
     Route: 048
     Dates: start: 20090122, end: 20090125
  7. AMOXICILLIN AND CLAVULANATE POTASSIUM [Concomitant]
     Dosage: 875/125 MG
     Route: 048
     Dates: start: 20090122, end: 20090127
  8. NEOMYCIN [Concomitant]
     Dosage: UNK
     Route: 061
     Dates: start: 20090106, end: 20090127

REACTIONS (1)
  - PROSTATE CANCER [None]
